FAERS Safety Report 7659368-5 (Version None)
Quarter: 2011Q3

REPORT INFORMATION
  Report Type: 
  Country: None (occurrence: None)
  Receive Date: 20110802
  Receipt Date: 20110721
  Transmission Date: 20111222
  Serious: Yes (Hospitalization)
  Sender: FDA-Public Use
  Company Number: 2010SP004036

PATIENT
  Age: 20 Year
  Sex: Female
  Weight: 77.1115 kg

DRUGS (2)
  1. NUVARING [Suspect]
     Indication: CONTRACEPTION
     Dates: start: 20071201, end: 20080101
  2. NUVARING [Suspect]
     Indication: CONTRACEPTION
     Dates: start: 20061201

REACTIONS (9)
  - PULMONARY EMBOLISM [None]
  - THROMBOSIS [None]
  - CERVICAL DYSPLASIA [None]
  - PAPILLOMA VIRAL INFECTION [None]
  - VULVOVAGINAL PRURITUS [None]
  - STRESS [None]
  - VAGINAL DISCHARGE [None]
  - HYPOCHROMIC ANAEMIA [None]
  - INITIAL INSOMNIA [None]
